FAERS Safety Report 24840242 (Version 1)
Quarter: 2025Q1

REPORT INFORMATION
  Report Type: Report from Study
  Country: CA (occurrence: CA)
  Receive Date: 20250114
  Receipt Date: 20250114
  Transmission Date: 20250409
  Serious: Yes (Hospitalization)
  Sender: ABBVIE
  Company Number: CA-ABBVIE-6080143

PATIENT
  Age: 83 Year
  Sex: Male

DRUGS (1)
  1. RINVOQ [Suspect]
     Active Substance: UPADACITINIB
     Indication: Rheumatoid arthritis
     Route: 048
     Dates: start: 20220725, end: 202412

REACTIONS (7)
  - Blood magnesium decreased [Not Recovered/Not Resolved]
  - Feeding disorder [Recovered/Resolved]
  - Blood potassium decreased [Not Recovered/Not Resolved]
  - Hypotension [Unknown]
  - Bradycardia [Unknown]
  - Atrial fibrillation [Not Recovered/Not Resolved]
  - Memory impairment [Not Recovered/Not Resolved]

NARRATIVE: CASE EVENT DATE: 20240101
